FAERS Safety Report 9866837 (Version 1)
Quarter: 2014Q1

REPORT INFORMATION
  Report Type: Spontaneous
  Country: US (occurrence: None)
  Receive Date: 20140203
  Receipt Date: 20140203
  Transmission Date: 20141002
  Serious: Yes (Life-Threatening)
  Sender: FDA-Public Use
  Company Number: None

PATIENT
  Age: 59 Year
  Sex: Female
  Weight: 82.56 kg

DRUGS (1)
  1. CYMBALTA [Suspect]
     Indication: PAIN
     Dosage: 2 CAPSULES ONCE DAILY TAKEN BY MOUTH
     Route: 048

REACTIONS (35)
  - Loss of consciousness [None]
  - Convulsion [None]
  - Blood glucose decreased [None]
  - Night sweats [None]
  - Blood glucose increased [None]
  - Bruxism [None]
  - Tremor [None]
  - Back pain [None]
  - Tinnitus [None]
  - Diarrhoea [None]
  - Nausea [None]
  - Dizziness [None]
  - Ill-defined disorder [None]
  - Crying [None]
  - Headache [None]
  - Photosensitivity reaction [None]
  - Eye pain [None]
  - Vision blurred [None]
  - Flatulence [None]
  - Abdominal pain [None]
  - Balance disorder [None]
  - Fatigue [None]
  - Panic attack [None]
  - Communication disorder [None]
  - Feeling of body temperature change [None]
  - Myalgia [None]
  - Chest pain [None]
  - Confusional state [None]
  - Disturbance in attention [None]
  - Fatigue [None]
  - Food craving [None]
  - Abnormal dreams [None]
  - Dehydration [None]
  - Urinary incontinence [None]
  - Palpitations [None]
